FAERS Safety Report 4882329-6 (Version None)
Quarter: 2006Q1

REPORT INFORMATION
  Report Type: 
  Country: None (occurrence: None)
  Receive Date: 20060117
  Receipt Date: 20050523
  Transmission Date: 20060701
  Serious: Yes (Hospitalization)
  Sender: FDA-Public Use
  Company Number: US-ROCHE-405702

PATIENT
  Age: 16 Year
  Sex: Female

DRUGS (5)
  1. ACCUTANE [Suspect]
     Indication: ACNE
     Route: 048
     Dates: start: 20021111, end: 20030116
  2. ACCUTANE [Suspect]
     Route: 048
     Dates: start: 20030116
  3. ACCUTANE [Suspect]
     Route: 048
     Dates: end: 20030301
  4. ACCUTANE [Suspect]
     Route: 048
     Dates: start: 20030301, end: 20030515
  5. ORTHO TRI-CYCLEN [Concomitant]
     Route: 048
     Dates: start: 20030116

REACTIONS (25)
  - ALCOHOL USE [None]
  - ANGER [None]
  - ATTENTION-SEEKING BEHAVIOUR [None]
  - COUGH [None]
  - DEPRESSION [None]
  - DRUG LEVEL BELOW THERAPEUTIC [None]
  - EDUCATIONAL PROBLEM [None]
  - FEELING GUILTY [None]
  - IMPULSIVE BEHAVIOUR [None]
  - INFLUENZA LIKE ILLNESS [None]
  - MENSTRUATION IRREGULAR [None]
  - MOOD SWINGS [None]
  - NASAL CONGESTION [None]
  - OFF LABEL USE [None]
  - OVERDOSE [None]
  - PAIN [None]
  - SCAR [None]
  - SEXUAL ASSAULT VICTIM [None]
  - SHOULDER PAIN [None]
  - SOCIAL AVOIDANT BEHAVIOUR [None]
  - STOMACH DISCOMFORT [None]
  - STRESS [None]
  - SUICIDE ATTEMPT [None]
  - TINEA INFECTION [None]
  - URINARY TRACT INFECTION [None]
